FAERS Safety Report 7865226-3 (Version None)
Quarter: 2011Q4

REPORT INFORMATION
  Report Type: 
  Country: None (occurrence: None)
  Receive Date: 20111028
  Receipt Date: 20101103
  Transmission Date: 20120403
  Serious: No
  Sender: FDA-Public Use
  Company Number: US-GLAXOSMITHKLINE-A0890559A

PATIENT
  Age: 71 Year
  Sex: Female

DRUGS (13)
  1. OXYBUTYN [Concomitant]
  2. FLUTICASONE PROPIONATE [Concomitant]
  3. RANITIDINE [Concomitant]
  4. ACTONEL [Concomitant]
  5. ACIDOPHILUS [Concomitant]
  6. HYDROCHLOROTHIAZIDE [Concomitant]
  7. OTC GENERIC ALLERGY MEDICATION [Concomitant]
  8. LODINE [Concomitant]
  9. ADVAIR DISKUS 100/50 [Suspect]
     Indication: CHRONIC OBSTRUCTIVE PULMONARY DISEASE
     Dosage: 1PUFF VARIABLE DOSE
     Route: 055
     Dates: end: 20100907
  10. SIMVASTATIN [Concomitant]
  11. RHINOCORT [Concomitant]
  12. CALCIUM WITH VITAMIN D [Concomitant]
  13. LISINOPRIL [Concomitant]

REACTIONS (3)
  - OESOPHAGEAL POLYP [None]
  - DYSPHONIA [None]
  - FOREIGN BODY [None]
